FAERS Safety Report 5335229-1 (Version None)
Quarter: 2007Q2

REPORT INFORMATION
  Report Type: 
  Country: None (occurrence: None)
  Receive Date: 20070525
  Receipt Date: 20070514
  Transmission Date: 20071010
  Serious: Yes (Hospitalization, Disabling)
  Sender: FDA-Public Use
  Company Number: GR-PFIZER INC-2007039073

PATIENT
  Age: 67 Year
  Sex: Male
  Weight: 75 kg

DRUGS (1)
  1. SUTENT [Suspect]
     Indication: RENAL CELL CARCINOMA STAGE UNSPECIFIED
     Route: 048
     Dates: start: 20070302, end: 20070401

REACTIONS (4)
  - ASCITES [None]
  - CARDIAC FAILURE [None]
  - HYPERKALAEMIA [None]
  - HYPONATRAEMIA [None]
